FAERS Safety Report 5264307-0 (Version None)
Quarter: 2007Q1

REPORT INFORMATION
  Report Type: 
  Country: None (occurrence: None)
  Receive Date: 20070302
  Receipt Date: 20040211
  Transmission Date: 20070707
  Serious: Yes (Other)
  Sender: FDA-Public Use
  Company Number: CHNY2004DE00807

PATIENT
  Age: 37 Year
  Sex: Female

DRUGS (2)
  1. TAVEGIL (NCH) (CLEMASTINE HYDROGEN FUMARATE)  TABLET [Suspect]
     Indication: PRURITUS
     Dosage: 1 DF, ONCE/SINGLE, ORAL
     Route: 048
     Dates: start: 20040210, end: 20040210
  2. ACYCLOVIR [Suspect]
     Indication: VARICELLA
     Dates: start: 20040207

REACTIONS (3)
  - CHROMATOPSIA [None]
  - FEELING ABNORMAL [None]
  - HALLUCINATION [None]
